FAERS Safety Report 10013702 (Version 1)
Quarter: 2014Q1

REPORT INFORMATION
  Report Type: Spontaneous
  Country: US (occurrence: US)
  Receive Date: 20140316
  Receipt Date: 20140316
  Transmission Date: 20141002
  Serious: Yes (Other)
  Sender: FDA-Public Use
  Company Number: US-BAYER-2014-036282

PATIENT
  Age: 71 Year
  Sex: Male

DRUGS (12)
  1. AVELOX [Suspect]
     Indication: LUNG INFECTION
     Dosage: 400 MG, QD
     Route: 048
     Dates: start: 20140219
  2. AVELOX [Suspect]
     Indication: LUNG INFECTION
     Dosage: 400 MG, QD
     Route: 048
  3. SYNTHROID [Concomitant]
  4. CARBAMAZEPINE [Concomitant]
  5. LIPITOR [Concomitant]
  6. WELCHOL [Concomitant]
  7. SILODOSIN [Concomitant]
  8. METOPROLOL [Concomitant]
  9. ADVAIR [Concomitant]
  10. SPIRIVA [Concomitant]
  11. ASPIRIN [Concomitant]
  12. MUCINEX DM [Concomitant]

REACTIONS (3)
  - Lung infection [None]
  - Increased bronchial secretion [None]
  - Productive cough [None]
